FAERS Safety Report 6097320-4 (Version None)
Quarter: 2009Q1

REPORT INFORMATION
  Report Type: 
  Country: None (occurrence: None)
  Receive Date: 20090219
  Receipt Date: 20081103
  Transmission Date: 20090719
  Serious: No
  Sender: FDA-Public Use
  Company Number: WAES 0811USA00294

PATIENT
  Age: 53 Year
  Sex: Female
  Weight: 80.2867 kg

DRUGS (12)
  1. JANUVIA [Suspect]
     Indication: DIABETES MELLITUS
     Dosage: 100 MG/DAILY/PO : 50 MG/DAILY/PO
     Route: 048
     Dates: start: 20080730, end: 20081031
  2. JANUVIA [Suspect]
     Indication: DIABETES MELLITUS
     Dosage: 100 MG/DAILY/PO : 50 MG/DAILY/PO
     Route: 048
     Dates: start: 20081031
  3. ARMOUR THYROID TABLETS [Concomitant]
  4. ASTELIN [Concomitant]
  5. CYMBALTA [Concomitant]
  6. NORCO [Concomitant]
  7. PRILOSEC [Concomitant]
  8. PROMETRIUM [Concomitant]
  9. SEROQUEL [Concomitant]
  10. XANAX [Concomitant]
  11. FENTANYL-25 [Concomitant]
  12. METFORMIN HCL [Concomitant]

REACTIONS (4)
  - ABDOMINAL PAIN [None]
  - CONSTIPATION [None]
  - MIGRAINE [None]
  - WEIGHT DECREASED [None]
